FAERS Safety Report 24922739 (Version 2)
Quarter: 2025Q2

REPORT INFORMATION
  Report Type: Spontaneous
  Country: GB (occurrence: GB)
  Receive Date: 20250204
  Receipt Date: 20250411
  Transmission Date: 20250717
  Serious: Yes (Other)
  Sender: NOVARTIS
  Company Number: GB-002147023-NVSC2025GB016116

PATIENT
  Sex: Female

DRUGS (4)
  1. GLIVEC [Suspect]
     Active Substance: IMATINIB MESYLATE
     Indication: Advanced systemic mastocytosis
     Route: 065
  2. GLIVEC [Suspect]
     Active Substance: IMATINIB MESYLATE
     Route: 065
  3. GLIVEC [Suspect]
     Active Substance: IMATINIB MESYLATE
     Route: 065
  4. GLIVEC [Suspect]
     Active Substance: IMATINIB MESYLATE
     Route: 065

REACTIONS (12)
  - Advanced systemic mastocytosis [Unknown]
  - Feeling abnormal [Unknown]
  - Drug intolerance [Unknown]
  - Feeling abnormal [Unknown]
  - Thinking abnormal [Unknown]
  - Dissociation [Unknown]
  - Mental disorder [Unknown]
  - Aggression [Unknown]
  - Abnormal behaviour [Unknown]
  - Drug hypersensitivity [Unknown]
  - Product label confusion [Unknown]
  - Product use issue [Unknown]
